FAERS Safety Report 8391708-4 (Version None)
Quarter: 2012Q1

REPORT INFORMATION
  Report Type: 
  Country: None (occurrence: None)
  Receive Date: 20120323
  Receipt Date: 20110322
  Transmission Date: 20120608
  Serious: Yes (Other)
  Sender: FDA-Public Use
  Company Number: 163-21880-11023256

PATIENT
  Age: 87 Year
  Sex: Female
  Weight: 60 kg

DRUGS (10)
  1. REVLIMID [Suspect]
  2. TOPAMAX [Concomitant]
  3. REVLIMID [Suspect]
     Indication: MYELODYSPLASTIC SYNDROME
     Dosage: 10 MG, 1 IN 1 D, PO, 25 MG, 1 IN 1 D, PO
     Route: 048
     Dates: start: 20110211, end: 20110221
  4. REVLIMID [Suspect]
     Indication: MYELODYSPLASTIC SYNDROME
     Dosage: 10 MG, 1 IN 1 D, PO, 25 MG, 1 IN 1 D, PO
     Route: 048
     Dates: start: 20101222
  5. ASPIRIN [Concomitant]
  6. COMPAZINE [Concomitant]
  7. NEURONTIN [Concomitant]
  8. FENTANYL [Concomitant]
  9. GABAPENTIN [Concomitant]
  10. KEPPRA [Concomitant]

REACTIONS (2)
  - RASH ERYTHEMATOUS [None]
  - BLISTER [None]
